FAERS Safety Report 10399021 (Version 1)
Quarter: 2014Q3

REPORT INFORMATION
  Report Type: Spontaneous
  Country: GB (occurrence: None)
  Receive Date: 20140819
  Receipt Date: 20140819
  Transmission Date: 20150326
  Serious: Yes (Life-Threatening, Other)
  Sender: FDA-Public Use
  Company Number: AUR-APL-2014-08463

PATIENT
  Age: 17 Year
  Sex: Female

DRUGS (1)
  1. SERTRALINE [Suspect]
     Active Substance: SERTRALINE HYDROCHLORIDE
     Indication: ANXIETY
     Route: 048

REACTIONS (7)
  - Head injury [None]
  - Hyperhidrosis [None]
  - Drug interaction [None]
  - Serotonin syndrome [None]
  - Dyskinesia [None]
  - Visual impairment [None]
  - Palpitations [None]
